FAERS Safety Report 10235451 (Version 1)
Quarter: 2014Q1

REPORT INFORMATION
  Report Type: Spontaneous
  Country: US (occurrence: None)
  Receive Date: 20140306
  Receipt Date: 20140306
  Transmission Date: 20141002
  Serious: Yes (Other)
  Sender: FDA-Public Use
  Company Number: 163-21880-13011096

PATIENT
  Age: 59 Year
  Sex: Female

DRUGS (19)
  1. REVLIMID [Suspect]
     Indication: PLASMA CELL MYELOMA
     Dosage: 20 MG, 21 IN D, PO
     Route: 048
     Dates: start: 20110928
  2. ANTIBIOTICS (ANTIBIOTICS) [Concomitant]
  3. PANTOPRAZOLE(PANTOPRAZOLE) [Concomitant]
  4. NAXONEX(MOMETASONE) [Concomitant]
  5. ANTIBIOTICS(ANTIBIOTICS)(UKNOWN) [Concomitant]
  6. PANTOPRAZOLE(PANTOPRAZOLE) [Concomitant]
  7. NASONEX(MOMETASONE FUROATE) [Concomitant]
  8. FEXOFENADINE(FEXOFENADINE) [Concomitant]
  9. MUCINEX(GUIFENESIN) [Concomitant]
  10. PREDNISONE(PREDNISONE) [Concomitant]
  11. FUROSEMIDE(FUROSEMIDE) [Concomitant]
  12. LIPITOR(ATORVASTATIN) [Concomitant]
  13. AREDIA(PAMIDRONATE DISODIUM) [Concomitant]
  14. NAPROXEN(NAPROXEN) [Concomitant]
  15. ONDANSETRON(ONDASETRON) [Concomitant]
  16. ASPIRIN(UKNOWN) [Concomitant]
  17. MVI(MIV)(UKNOWN) [Concomitant]
  18. PROAIR(FLUTICASONE PROPIONATE) [Concomitant]
  19. AZOE(ALPRAZOLAM)(UKNOWN) [Concomitant]

REACTIONS (2)
  - Asthma [None]
  - Influenza [None]
